FAERS Safety Report 4474654-8 (Version None)
Quarter: 2004Q4

REPORT INFORMATION
  Report Type: 
  Country: None (occurrence: None)
  Receive Date: 20041014
  Receipt Date: 20041001
  Transmission Date: 20050328
  Serious: Yes (Other)
  Sender: FDA-Public Use
  Company Number: PHEH2004US10670

PATIENT
  Age: 65 Year
  Sex: Male

DRUGS (1)
  1. GLEEVEC [Suspect]
     Indication: LEUKAEMIA
     Route: 048
     Dates: end: 20040901

REACTIONS (2)
  - GASTRIC ANTRAL VASCULAR ECTASIA [None]
  - LEUKAEMIA RECURRENT [None]
